FAERS Safety Report 9729513 (Version 1)
Quarter: 2013Q4

REPORT INFORMATION
  Report Type: Spontaneous
  Country: US (occurrence: US)
  Receive Date: 20131204
  Receipt Date: 20131204
  Transmission Date: 20140711
  Serious: No
  Sender: FDA-Public Use
  Company Number: US-GILEAD-2009-0022107

PATIENT
  Age: 80 Year
  Sex: Male

DRUGS (12)
  1. LETAIRIS [Suspect]
     Indication: PULMONARY ARTERIAL HYPERTENSION
     Route: 048
     Dates: start: 20090314, end: 20090510
  2. METOPROLOL [Concomitant]
  3. FUROSEMIDE [Concomitant]
  4. ENALAPRIL [Concomitant]
  5. NORVASC [Concomitant]
  6. LIPITOR [Concomitant]
  7. ASPIRIN [Concomitant]
  8. TYLENOL [Concomitant]
  9. POTASSIUM [Concomitant]
  10. CALCIUM [Concomitant]
  11. IRON [Concomitant]
  12. MULTI-VITAMIN [Concomitant]

REACTIONS (1)
  - Dyspnoea [Recovered/Resolved]
